FAERS Safety Report 5238262-3 (Version None)
Quarter: 2007Q1

REPORT INFORMATION
  Report Type: 
  Country: None (occurrence: None)
  Receive Date: 20070215
  Receipt Date: 20070207
  Transmission Date: 20070707
  Serious: Yes (Hospitalization)
  Sender: FDA-Public Use
  Company Number: FR-BRISTOL-MYERS SQUIBB COMPANY-13672258

PATIENT
  Age: 78 Year
  Sex: Male

DRUGS (9)
  1. COUMADIN [Suspect]
     Route: 048
     Dates: start: 20061011, end: 20061101
  2. PERINDOPRIL ERBUMINE [Suspect]
     Route: 048
     Dates: start: 20061005, end: 20061101
  3. ZYLORIC [Suspect]
     Route: 048
     Dates: start: 20060101, end: 20061113
  4. KENZEN [Suspect]
     Route: 048
     Dates: start: 20061101, end: 20061108
  5. SIMVASTATIN [Suspect]
     Route: 048
     Dates: start: 20061014, end: 20061108
  6. CORDARONE [Suspect]
     Route: 048
     Dates: start: 20061008
  7. KARDEGIC [Concomitant]
     Dates: start: 20061001
  8. LASIX [Concomitant]
     Dosage: RESTARTED 01-NOV-06 TO 08-NOV-06
     Dates: start: 20061001, end: 20061031
  9. CALCIPARINE [Concomitant]
     Dates: start: 20061001

REACTIONS (4)
  - DIARRHOEA [None]
  - EOSINOPHILIA [None]
  - PRURITUS [None]
  - RENAL FAILURE ACUTE [None]
